FAERS Safety Report 8011804-0 (Version None)
Quarter: 2011Q4

REPORT INFORMATION
  Report Type: 
  Country: None (occurrence: None)
  Receive Date: 20111228
  Receipt Date: 20111219
  Transmission Date: 20120403
  Serious: Yes (Hospitalization)
  Sender: FDA-Public Use
  Company Number: US-BAYER-2011-028651

PATIENT
  Age: 33 Year
  Sex: Female
  Weight: 71 kg

DRUGS (6)
  1. YASMIN [Suspect]
     Indication: CONTRACEPTION
     Dosage: UNK
     Route: 048
     Dates: start: 20050126
  2. YASMIN [Suspect]
     Dosage: UNK
     Dates: start: 20081216, end: 20090401
  3. DROSPIRENONE AND ETHINYL ESTRADIOL [Suspect]
     Indication: CONTRACEPTION
     Dosage: UNK
     Dates: start: 20050126
  4. DROSPIRENONE AND ETHINYL ESTRADIOL [Suspect]
     Dosage: UNK
     Route: 048
     Dates: start: 20060821, end: 20070601
  5. YASMIN [Suspect]
     Dosage: UNK
     Route: 048
     Dates: start: 20060821, end: 20070601
  6. DROSPIRENONE AND ETHINYL ESTRADIOL [Suspect]
     Dosage: UNK
     Route: 048
     Dates: start: 20081216, end: 20090401

REACTIONS (2)
  - PULMONARY EMBOLISM [None]
  - PAIN [None]
